FAERS Safety Report 20141275 (Version 1)
Quarter: 2021Q4

REPORT INFORMATION
  Report Type: Spontaneous
  Country: US (occurrence: US)
  Receive Date: 20211202
  Receipt Date: 20211202
  Transmission Date: 20220303
  Serious: Yes (Hospitalization, Other)
  Sender: FDA-Public Use
  Company Number: US-SA-2021SA396978

PATIENT
  Age: 77 Year
  Sex: Male

DRUGS (4)
  1. CLOPIDOGREL BISULFATE [Suspect]
     Active Substance: CLOPIDOGREL BISULFATE
     Indication: Coronary artery disease
     Dosage: UNK
     Dates: start: 2015
  2. CLOPIDOGREL BISULFATE [Suspect]
     Active Substance: CLOPIDOGREL BISULFATE
     Indication: Myocardial infarction
  3. ASPIRIN [Concomitant]
     Active Substance: ASPIRIN
     Indication: Coronary artery disease
     Dosage: UNK
     Dates: start: 2015
  4. ASPIRIN [Concomitant]
     Active Substance: ASPIRIN
     Indication: Myocardial infarction

REACTIONS (10)
  - Embolism arterial [Recovered/Resolved]
  - Gastritis bacterial [Recovered/Resolved]
  - Gastric ischaemia [Recovered/Resolved]
  - Gastric ulcer [Recovered/Resolved]
  - Melaena [Recovered/Resolved]
  - Dyspnoea [Recovered/Resolved]
  - Lethargy [Recovered/Resolved]
  - Hypotension [Recovered/Resolved]
  - Abdominal pain [Recovered/Resolved]
  - Haematemesis [Recovered/Resolved]
